FAERS Safety Report 7800711-1 (Version None)
Quarter: 2011Q4

REPORT INFORMATION
  Report Type: 
  Country: None (occurrence: None)
  Receive Date: 20111006
  Receipt Date: 20110930
  Transmission Date: 20120403
  Serious: Yes (Hospitalization, Other)
  Sender: FDA-Public Use
  Company Number: JP-B.I. PHARMACEUTICALS,INC./RIDGEFIELD-2011-BP-20287NB

PATIENT
  Sex: Female
  Weight: 41 kg

DRUGS (5)
  1. TELMISARTAN AND HYDROCHLOROTHIAZIDE [Suspect]
     Indication: HYPERTENSION
     Dosage: 1DF(TELMISARTAN40MG/HYDROCHLOROTHIAZIDE12.5MG)
     Route: 048
     Dates: start: 20100223, end: 20110816
  2. METFORMIN HCL [Concomitant]
     Indication: DIABETES MELLITUS
     Route: 048
  3. LENDEM [Suspect]
     Indication: INSOMNIA
     Dosage: 0.25 MG
     Route: 048
     Dates: end: 20110815
  4. LIPOZART [Concomitant]
     Indication: HYPERLIPIDAEMIA
     Dosage: 10 MG
     Route: 048
  5. PIOGLITAZONE HYDROCHLORIDE [Concomitant]
     Indication: DIABETES MELLITUS
     Dosage: 15 MG
     Route: 048

REACTIONS (5)
  - DEHYDRATION [None]
  - CONTUSION [None]
  - FALL [None]
  - SYNCOPE [None]
  - HYPONATRAEMIA [None]
